FAERS Safety Report 22256139 (Version 1)
Quarter: 2023Q2

REPORT INFORMATION
  Report Type: Spontaneous
  Country: FR (occurrence: None)
  Receive Date: 20230426
  Receipt Date: 20230426
  Transmission Date: 20230721
  Serious: Yes (Other)
  Sender: FDA-Public Use
  Company Number: 2023A017965

PATIENT
  Sex: Male
  Weight: 2 kg

DRUGS (8)
  1. PROPRANOLOL [Suspect]
     Active Substance: PROPRANOLOL HYDROCHLORIDE
     Indication: Tachycardia
     Dosage: (MATERNAL DOSE 20 MG, EVERY 12 HR)
     Route: 064
     Dates: start: 20230106
  2. PROPRANOLOL [Suspect]
     Active Substance: PROPRANOLOL HYDROCHLORIDE
     Indication: Foetal exposure during pregnancy
     Dosage: (MATERNAL DOSE 20 MG, EVERY 12 HR)
     Route: 064
     Dates: start: 20230106
  3. PROPRANOLOL [Suspect]
     Active Substance: PROPRANOLOL HYDROCHLORIDE
     Indication: Tachycardia
     Dosage: (MATERNAL DOSE 20 MG, EVERY 12 HR)
     Route: 064
     Dates: start: 20221211
  4. PROPRANOLOL [Suspect]
     Active Substance: PROPRANOLOL HYDROCHLORIDE
     Indication: Foetal exposure during pregnancy
     Dosage: (MATERNAL DOSE 20 MG, EVERY 12 HR)
     Route: 064
     Dates: start: 20221211
  5. ATENOLOL [Suspect]
     Active Substance: ATENOLOL
     Indication: Tachycardia
     Route: 064
  6. ATENOLOL [Suspect]
     Active Substance: ATENOLOL
     Indication: Foetal exposure during pregnancy
     Route: 064
  7. ESOMEPRAZOLE [Suspect]
     Active Substance: ESOMEPRAZOLE
     Indication: Gastrooesophageal reflux disease
     Route: 064
     Dates: end: 20230106
  8. ESOMEPRAZOLE [Suspect]
     Active Substance: ESOMEPRAZOLE
     Indication: Foetal exposure during pregnancy
     Route: 064
     Dates: end: 20230106

REACTIONS (5)
  - Foetal growth restriction [Not Recovered/Not Resolved]
  - Low birth weight baby [Unknown]
  - Bradycardia [Recovered/Resolved]
  - Hypoglycaemia [Recovered/Resolved]
  - Foetal exposure during pregnancy [Unknown]

NARRATIVE: CASE EVENT DATE: 20230106
